FAERS Safety Report 19002470 (Version 1)
Quarter: 2021Q1

REPORT INFORMATION
  Report Type: Spontaneous
  Country: BR (occurrence: BR)
  Receive Date: 20210312
  Receipt Date: 20210312
  Transmission Date: 20210420
  Serious: Yes (Hospitalization, Other)
  Sender: FDA-Public Use
  Company Number: BR-PFIZER INC-2007UW19712

PATIENT
  Age: 20 Month
  Sex: Male

DRUGS (7)
  1. CEFEPIME [Concomitant]
     Active Substance: CEFEPIME HYDROCHLORIDE
     Dosage: UNK
  2. MEROPENEM. [Suspect]
     Active Substance: MEROPENEM
     Dosage: UNK
     Route: 042
  3. VANCOMYCIN [Suspect]
     Active Substance: VANCOMYCIN
     Indication: CNS VENTRICULITIS
     Dosage: UNK
  4. CEFTRIAXONE. [Concomitant]
     Active Substance: CEFTRIAXONE
     Indication: PNEUMONIA ASPIRATION
     Dosage: UNK
  5. MEROPENEM. [Suspect]
     Active Substance: MEROPENEM
     Indication: CNS VENTRICULITIS
     Dosage: UNK
     Route: 042
  6. OXACILLIN [Concomitant]
     Active Substance: OXACILLIN SODIUM
     Indication: PNEUMONIA ASPIRATION
     Dosage: UNK
  7. FLUCONAZOLE. [Concomitant]
     Active Substance: FLUCONAZOLE
     Indication: FUNGAL TEST POSITIVE
     Dosage: UNK

REACTIONS (4)
  - Bacterial test positive [Recovered/Resolved]
  - Cardiac valve abscess [Unknown]
  - Pyrexia [Recovered/Resolved]
  - Drug ineffective [Unknown]
